FAERS Safety Report 23249371 (Version 1)
Quarter: 2023Q4

REPORT INFORMATION
  Report Type: Spontaneous
  Country: US (occurrence: US)
  Receive Date: 20231201
  Receipt Date: 20231201
  Transmission Date: 20240109
  Serious: Yes (Death, Life-Threatening, Hospitalization, Other)
  Sender: FDA-Public Use
  Company Number: US-drreddys-SPO/USA/23/0187547

PATIENT
  Age: 72 Year
  Sex: Female

DRUGS (1)
  1. TERBINAFINE [Suspect]
     Active Substance: TERBINAFINE
     Indication: Onychomycosis

REACTIONS (4)
  - Acute kidney injury [Fatal]
  - Acute hepatic failure [Fatal]
  - Drug-induced liver injury [Fatal]
  - Rhabdomyolysis [Fatal]
